FAERS Safety Report 7544193-6 (Version None)
Quarter: 2011Q2

REPORT INFORMATION
  Report Type: 
  Country: None (occurrence: None)
  Receive Date: 20110613
  Receipt Date: 20061025
  Transmission Date: 20111010
  Serious: Yes (Hospitalization, Other)
  Sender: FDA-Public Use
  Company Number: PHMT2006CA02033

PATIENT
  Sex: Female

DRUGS (18)
  1. HYDROXYZINE [Concomitant]
  2. RANITIDINE ^RATIOPHARM^ [Concomitant]
  3. ACETAMINOPHEN [Concomitant]
  4. SENNOSIDES A+B [Concomitant]
  5. CODEINE SULFATE [Concomitant]
  6. DESIPRAMIDE HCL [Concomitant]
  7. DILAUDID [Concomitant]
  8. DULCOLAX [Concomitant]
  9. MORPHINE [Concomitant]
  10. OXYCODONE [Concomitant]
  11. CODEINE CONTIN [Concomitant]
  12. DEXAMETHASONE [Concomitant]
  13. OXICONAZOLE [Concomitant]
  14. PANTOPRAZOLE SODIUM [Concomitant]
  15. LACTULOSE [Concomitant]
  16. ZOMETA [Suspect]
     Indication: BREAST CANCER
     Dosage: 4MG IV ONCE A MONTH
     Route: 042
     Dates: start: 20060731
  17. GABAPENTIN [Concomitant]
  18. METOCLOPRAMIDE [Concomitant]

REACTIONS (3)
  - HIP FRACTURE [None]
  - POOR VENOUS ACCESS [None]
  - VESSEL PUNCTURE SITE HAEMATOMA [None]
